FAERS Safety Report 8828605 (Version 1)
Quarter: 2012Q4

REPORT INFORMATION
  Report Type: 
  Country: GB (occurrence: GB)
  Receive Date: 20121005
  Receipt Date: 20121005
  Transmission Date: 20130627
  Serious: Yes (Other)
  Sender: FDA-Public Use
  Company Number: GB-TEVA-360606ISR

PATIENT
  Age: 60 Year
  Sex: Male

DRUGS (1)
  1. BACLOFEN [Suspect]
     Indication: MUSCULOSKELETAL STIFFNESS

REACTIONS (4)
  - Eating disorder [Unknown]
  - Dysphagia [Unknown]
  - Dysarthria [Unknown]
  - Gait disturbance [Unknown]
